FAERS Safety Report 23977062 (Version 1)
Quarter: 2024Q2

REPORT INFORMATION
  Report Type: Spontaneous
  Country: AU (occurrence: AU)
  Receive Date: 20240614
  Receipt Date: 20240614
  Transmission Date: 20240716
  Serious: Yes (Other)
  Sender: FDA-Public Use
  Company Number: AU-MYLANLABS-2024M1052133

PATIENT
  Sex: Female

DRUGS (4)
  1. CLOZARIL [Suspect]
     Active Substance: CLOZAPINE
     Indication: Schizophrenia
     Dosage: UNK
     Route: 065
  2. CLOZARIL [Suspect]
     Active Substance: CLOZAPINE
     Indication: Bipolar disorder
  3. LITHIUM [Suspect]
     Active Substance: LITHIUM
     Indication: Bipolar disorder
     Dosage: UNK
     Route: 065
  4. LITHIUM [Suspect]
     Active Substance: LITHIUM
     Indication: Schizophrenia

REACTIONS (9)
  - Polycystic ovarian syndrome [Unknown]
  - Memory impairment [Unknown]
  - Dysarthria [Unknown]
  - Drooling [Unknown]
  - Dysmenorrhoea [Unknown]
  - Incontinence [Unknown]
  - Enuresis [Unknown]
  - Dizziness [Unknown]
  - Weight increased [Unknown]
